FAERS Safety Report 11655568 (Version 4)
Quarter: 2016Q2

REPORT INFORMATION
  Report Type: Spontaneous
  Country: US (occurrence: US)
  Receive Date: 20151023
  Receipt Date: 20160404
  Transmission Date: 20160815
  Serious: No
  Sender: FDA-Public Use
  Company Number: US-PFIZER INC-2015356493

PATIENT
  Age: 64 Year
  Sex: Female
  Weight: 46 kg

DRUGS (4)
  1. ESTRING [Suspect]
     Active Substance: ESTRADIOL
     Indication: BLOOD OESTROGEN DECREASED
     Dosage: 2 MG, EVERY 90 DAYS
     Route: 067
  2. PROLIA [Concomitant]
     Active Substance: DENOSUMAB
  3. VICODIN [Suspect]
     Active Substance: ACETAMINOPHEN\HYDROCODONE BITARTRATE
     Indication: TOOTHACHE
     Dosage: UNK
     Dates: start: 201510
  4. XANAX [Concomitant]
     Active Substance: ALPRAZOLAM
     Dosage: 0.05 MG, DAILY

REACTIONS (7)
  - Eczema [Not Recovered/Not Resolved]
  - Rash pruritic [Recovered/Resolved]
  - Skin burning sensation [Not Recovered/Not Resolved]
  - Toothache [Not Recovered/Not Resolved]
  - Rash [Not Recovered/Not Resolved]
  - Thyroid function test abnormal [Recovered/Resolved]
  - Dizziness [Unknown]

NARRATIVE: CASE EVENT DATE: 201409
